FAERS Safety Report 7619816-3 (Version None)
Quarter: 2011Q3

REPORT INFORMATION
  Report Type: 
  Country: None (occurrence: None)
  Receive Date: 20110719
  Receipt Date: 20110711
  Transmission Date: 20111222
  Serious: Yes (Other)
  Sender: FDA-Public Use
  Company Number: CA-B.I. PHARMACEUTICALS,INC./RIDGEFIELD-2011-CN-00924CN

PATIENT
  Sex: Male

DRUGS (4)
  1. PRADAXA [Suspect]
     Indication: ATRIAL FIBRILLATION
     Dosage: 300 MG
     Dates: start: 20110102
  2. CARDIZEM [Concomitant]
     Dosage: 120 MG
  3. DIGOXIN [Concomitant]
     Dosage: 0.125 MG
  4. LIPITOR [Concomitant]
     Dosage: 20 MG

REACTIONS (1)
  - TRANSIENT ISCHAEMIC ATTACK [None]
